FAERS Safety Report 15893595 (Version 2)
Quarter: 2019Q1

REPORT INFORMATION
  Report Type: Spontaneous
  Country: GB (occurrence: GB)
  Receive Date: 20190131
  Receipt Date: 20190322
  Transmission Date: 20190417
  Serious: Yes (Hospitalization, Other)
  Sender: FDA-Public Use
  Company Number: GB-009507513-1901GBR009481

PATIENT
  Age: 35 Year
  Sex: Female
  Weight: 67.3 kg

DRUGS (2)
  1. NEXPLANON [Suspect]
     Active Substance: ETONOGESTREL
     Indication: CONTRACEPTION
     Dosage: 1 IMPLANT, DURATION OF 3 YEARS
     Route: 059
     Dates: start: 20160119, end: 20190115
  2. NEXPLANON [Suspect]
     Active Substance: ETONOGESTREL
     Dosage: UNK

REACTIONS (6)
  - Unintended pregnancy [Recovered/Resolved]
  - Amenorrhoea [Unknown]
  - Pregnancy with implant contraceptive [Recovered/Resolved]
  - Abortion of ectopic pregnancy [Recovered/Resolved]
  - Appendicitis [Recovered/Resolved]
  - Ectopic pregnancy [Recovered/Resolved]

NARRATIVE: CASE EVENT DATE: 2018
